FAERS Safety Report 8448469 (Version 2)
Quarter: 2012Q4

REPORT INFORMATION
  Report Type: 
  Country: BR (occurrence: BR)
  Receive Date: 20120308
  Receipt Date: 20121005
  Transmission Date: 20130627
  Serious: Yes (Hospitalization)
  Sender: FDA-Public Use
  Company Number: BR-ASTRAZENECA-2012SE14353

PATIENT
  Age: 69 Year
  Sex: Female

DRUGS (2)
  1. ATACAND [Suspect]
     Indication: HYPERTENSION
     Route: 048
     Dates: start: 2009, end: 20120228
  2. LABIRIN [Concomitant]
     Indication: LABYRINTHITIS
     Route: 048
     Dates: start: 2008

REACTIONS (1)
  - Lung infection [Recovered/Resolved]
